FAERS Safety Report 23319736 (Version 1)
Quarter: 2023Q4

REPORT INFORMATION
  Report Type: Spontaneous
  Country: US (occurrence: US)
  Receive Date: 20231220
  Receipt Date: 20231220
  Transmission Date: 20240109
  Serious: Yes (Other)
  Sender: FDA-Public Use
  Company Number: US-STRIDES ARCOLAB LIMITED-2023SP006574

PATIENT
  Age: 30 Year
  Sex: Male

DRUGS (22)
  1. VALGANCICLOVIR HYDROCHLORIDE [Suspect]
     Active Substance: VALGANCICLOVIR HYDROCHLORIDE
     Indication: Cytomegalovirus viraemia
     Dosage: UNK
     Route: 065
     Dates: start: 2021
  2. METHYLPREDNISOLONE [Concomitant]
     Active Substance: METHYLPREDNISOLONE
     Indication: Swelling face
     Dosage: UNK
     Route: 065
     Dates: start: 2021
  3. METHYLPREDNISOLONE [Concomitant]
     Active Substance: METHYLPREDNISOLONE
     Indication: Soft tissue swelling
  4. METHYLPREDNISOLONE [Concomitant]
     Active Substance: METHYLPREDNISOLONE
     Indication: Periorbital oedema
  5. PREDNISONE [Concomitant]
     Active Substance: PREDNISONE
     Indication: Periorbital oedema
     Dosage: UNK
     Route: 065
     Dates: start: 2021
  6. PREDNISONE [Concomitant]
     Active Substance: PREDNISONE
     Indication: Swelling face
     Dosage: UNK (TAPER)
     Route: 065
     Dates: start: 2021
  7. PREDNISONE [Concomitant]
     Active Substance: PREDNISONE
     Indication: Soft tissue swelling
  8. BICTEGRAVIR [Concomitant]
     Active Substance: BICTEGRAVIR
     Indication: Antiretroviral therapy
     Dosage: UNK
     Route: 065
     Dates: start: 2021
  9. EMTRICITABINE [Concomitant]
     Active Substance: EMTRICITABINE
     Indication: Antiretroviral therapy
     Dosage: UNK
     Route: 065
     Dates: start: 2021
  10. TENOFOVIR ALAFENAMIDE [Concomitant]
     Active Substance: TENOFOVIR ALAFENAMIDE
     Indication: Antiretroviral therapy
     Dosage: UNK
     Route: 065
     Dates: start: 2021
  11. FLUCONAZOLE [Concomitant]
     Active Substance: FLUCONAZOLE
     Indication: Oral candidiasis
     Dosage: UNK
     Route: 065
     Dates: start: 2021
  12. FLUCONAZOLE [Concomitant]
     Active Substance: FLUCONAZOLE
     Indication: Oropharyngeal candidiasis
  13. FLUCONAZOLE [Concomitant]
     Active Substance: FLUCONAZOLE
     Indication: Oesophageal candidiasis
  14. EPINEPHRINE [Concomitant]
     Active Substance: EPINEPHRINE
     Indication: Periorbital oedema
     Dosage: UNK
     Route: 065
     Dates: start: 2021
  15. EPINEPHRINE [Concomitant]
     Active Substance: EPINEPHRINE
     Indication: Soft tissue swelling
  16. EPINEPHRINE [Concomitant]
     Active Substance: EPINEPHRINE
     Indication: Swelling face
  17. DORAVIRINE [Concomitant]
     Active Substance: DORAVIRINE
     Indication: HIV infection
     Dosage: UNK
     Route: 065
     Dates: start: 2021
  18. COBICISTAT\DARUNAVIR ETHANOLATE [Concomitant]
     Active Substance: COBICISTAT\DARUNAVIR ETHANOLATE
     Indication: HIV infection
     Dosage: UNK
     Route: 065
     Dates: start: 2021
  19. VANCOMYCIN [Concomitant]
     Active Substance: VANCOMYCIN
     Indication: Staphylococcal bacteraemia
     Dosage: UNK
     Route: 065
  20. PENICILLIN G [Concomitant]
     Active Substance: PENICILLIN G
     Indication: Secondary syphilis
     Dosage: UNK
     Route: 065
  21. COTRIMOXAZOLE [Concomitant]
     Active Substance: SULFAMETHOXAZOLE\TRIMETHOPRIM
     Indication: Prophylaxis
     Dosage: UNK
     Route: 065
  22. DOXYCYCLINE [Concomitant]
     Active Substance: DOXYCYCLINE
     Indication: Swelling face
     Dosage: UNK
     Route: 065

REACTIONS (2)
  - Pancytopenia [Unknown]
  - Myelosuppression [Unknown]

NARRATIVE: CASE EVENT DATE: 20210101
